FAERS Safety Report 10599020 (Version 1)
Quarter: 2014Q4

REPORT INFORMATION
  Report Type: Report from Study
  Country: NL (occurrence: NL)
  Receive Date: 20141121
  Receipt Date: 20141121
  Transmission Date: 20150529
  Serious: Yes (Other)
  Sender: FDA-Public Use
  Company Number: NL-AMGEN-NLDSL2013094746

PATIENT
  Age: 66 Year
  Sex: Female

DRUGS (1)
  1. NEULASTA [Suspect]
     Active Substance: PEGFILGRASTIM
     Indication: PRODUCT USED FOR UNKNOWN INDICATION
     Dosage: 6 MG, Q3WK
     Route: 065

REACTIONS (7)
  - Arterial thrombosis [Recovered/Resolved]
  - Breast oedema [Recovered/Resolved]
  - Confusional state [Recovered/Resolved]
  - Bone pain [Recovered/Resolved]
  - Haematoma [Recovered/Resolved]
  - Breast operation [Unknown]
  - Surgery [Unknown]

NARRATIVE: CASE EVENT DATE: 20140102
